FAERS Safety Report 12423198 (Version 1)
Quarter: 2016Q2

REPORT INFORMATION
  Report Type: Spontaneous
  Country: US (occurrence: None)
  Receive Date: 20160531
  Receipt Date: 20160531
  Transmission Date: 20160815
  Serious: Yes (Other)
  Sender: FDA-Public Use
  Company Number: None

PATIENT
  Age: 3 Year
  Sex: Male

DRUGS (4)
  1. OMEPROZOLE 40 MG [Suspect]
     Active Substance: OMEPRAZOLE
     Indication: GASTROOESOPHAGEAL REFLUX DISEASE
     Dosage: 90 PILLS 1 DAILY MOUTH
     Route: 048
     Dates: start: 201111, end: 20160521
  2. VERAPAMIL [Concomitant]
     Active Substance: VERAPAMIL HYDROCHLORIDE
  3. OMEPROZOLE 40 MG [Suspect]
     Active Substance: OMEPRAZOLE
     Indication: FLATULENCE
     Dosage: 90 PILLS 1 DAILY MOUTH
     Route: 048
     Dates: start: 201111, end: 20160521
  4. METOPROLOL. [Concomitant]
     Active Substance: METOPROLOL

REACTIONS (2)
  - Chronic kidney disease [None]
  - Dizziness [None]

NARRATIVE: CASE EVENT DATE: 20141117
